FAERS Safety Report 4715474-6 (Version None)
Quarter: 2005Q3

REPORT INFORMATION
  Report Type: 
  Country: None (occurrence: None)
  Receive Date: 20050713
  Receipt Date: 20050701
  Transmission Date: 20060218
  Serious: Yes (Other)
  Sender: FDA-Public Use
  Company Number: KII-2005-0017312

PATIENT
  Age: 23 Year
  Sex: Female

DRUGS (1)
  1. MORPHINE SULFATE [Suspect]
     Dosage: INHALATION
     Route: 055

REACTIONS (2)
  - DRUG ABUSER [None]
  - LOSS OF CONSCIOUSNESS [None]
